FAERS Safety Report 20921049 (Version 1)
Quarter: 2022Q2

REPORT INFORMATION
  Report Type: Spontaneous
  Country: US (occurrence: US)
  Receive Date: 20220606
  Receipt Date: 20220606
  Transmission Date: 20220721
  Serious: No
  Sender: FDA-Public Use
  Company Number: US-BRISTOL-MYERS SQUIBB COMPANY-2022-051898

PATIENT
  Age: 67 Year
  Sex: Male
  Weight: 72.57 kg

DRUGS (4)
  1. REVLIMID [Suspect]
     Active Substance: LENALIDOMIDE
     Indication: Plasma cell myeloma
     Dosage: REST 7 DAYS
     Dates: start: 20210608
  2. SARCLISA [Concomitant]
     Active Substance: ISATUXIMAB-IRFC
  3. KYPROLIS [Concomitant]
     Active Substance: CARFILZOMIB
  4. CELEXA [Concomitant]
     Active Substance: CITALOPRAM HYDROBROMIDE

REACTIONS (2)
  - Therapy non-responder [Unknown]
  - Intentional product misuse [Unknown]
